FAERS Safety Report 8186834-9 (Version None)
Quarter: 2012Q1

REPORT INFORMATION
  Report Type: 
  Country: None (occurrence: None)
  Receive Date: 20120306
  Receipt Date: 20120224
  Transmission Date: 20120608
  Serious: Yes (Hospitalization)
  Sender: FDA-Public Use
  Company Number: GB-AMGEN-GBRCT2011067695

PATIENT
  Age: 76 Year
  Sex: Female

DRUGS (11)
  1. METHOTREXATE [Concomitant]
     Dosage: UNK
     Dates: start: 20111214, end: 20120119
  2. AMLODIPINE [Concomitant]
     Dosage: 10 MG, UNK
     Route: 048
  3. METFORMIN HCL [Concomitant]
     Dosage: 500 MG, BID
     Route: 048
  4. FLUOROURACIL [Concomitant]
     Dosage: UNK
     Dates: start: 20111214, end: 20120119
  5. ADCAL D3 [Concomitant]
     Dosage: UNK
     Route: 048
  6. DOCETAXEL [Concomitant]
     Dosage: UNK
     Dates: start: 20110914
  7. CYCLOPHOSPHAMIDE [Concomitant]
     Dosage: UNK
     Dates: start: 20111214, end: 20120119
  8. LEVOTHYROXINE SODIUM [Concomitant]
     Dosage: 25 MG, UNK
     Route: 048
  9. XGEVA [Suspect]
     Indication: BREAST CANCER
     Dosage: 120 MG, Q3MO
     Route: 058
     Dates: start: 20110803
  10. RAMIPRIL [Concomitant]
     Dosage: 2.5 MG, UNK
     Route: 048
  11. ACETAMINOPHEN [Concomitant]
     Dosage: 500 MG, PRN
     Route: 048

REACTIONS (1)
  - DIVERTICULITIS [None]
